FAERS Safety Report 7267360-8 (Version None)
Quarter: 2011Q1

REPORT INFORMATION
  Report Type: 
  Country: None (occurrence: None)
  Receive Date: 20110201
  Receipt Date: 20100608
  Transmission Date: 20110831
  Serious: No
  Sender: FDA-Public Use
  Company Number: A0863776A

PATIENT

DRUGS (1)
  1. ARIXTRA [Suspect]
     Route: 065
     Dates: start: 20100101

REACTIONS (1)
  - HICCUPS [None]
